FAERS Safety Report 7377702-0 (Version None)
Quarter: 2011Q1

REPORT INFORMATION
  Report Type: 
  Country: None (occurrence: None)
  Receive Date: 20110328
  Receipt Date: 20110315
  Transmission Date: 20110831
  Serious: Yes (Other)
  Sender: FDA-Public Use
  Company Number: JP-JNJFOC-20110309351

PATIENT
  Age: 69 Year
  Sex: Male

DRUGS (2)
  1. HAEMOSTYPTICUM REVICI [Suspect]
     Indication: FUNGAL INFECTION
     Route: 065
  2. ITRACONAZOLE [Suspect]
     Indication: FUNGAL INFECTION
     Route: 065

REACTIONS (3)
  - ASPHYXIA [None]
  - HAEMOPTYSIS [None]
  - CARDIO-RESPIRATORY ARREST [None]
